FAERS Safety Report 21432552 (Version 1)
Quarter: 2022Q4

REPORT INFORMATION
  Report Type: Spontaneous
  Country: AT (occurrence: AT)
  Receive Date: 20221010
  Receipt Date: 20221010
  Transmission Date: 20230113
  Serious: Yes (Hospitalization)
  Sender: FDA-Public Use
  Company Number: AT-PFIZER INC-PV202200075245

PATIENT
  Age: 85 Year
  Sex: Female

DRUGS (1)
  1. ENBREL [Suspect]
     Active Substance: ETANERCEPT
     Indication: Rheumatoid arthritis
     Dosage: UNK UNK, QWK
     Route: 058

REACTIONS (4)
  - Cough [Recovering/Resolving]
  - Chest pain [Recovering/Resolving]
  - Neoplasm [Recovering/Resolving]
  - Lymphadenopathy [Recovering/Resolving]
